FAERS Safety Report 14733591 (Version 21)
Quarter: 2020Q4

REPORT INFORMATION
  Report Type: Report from Study
  Country: BR (occurrence: BR)
  Receive Date: 20180409
  Receipt Date: 20201118
  Transmission Date: 20210113
  Serious: Yes (Hospitalization)
  Sender: FDA-Public Use
  Company Number: BR-ROCHE-2099030

PATIENT
  Age: 59 Year
  Sex: Female
  Weight: 63.5 kg

DRUGS (83)
  1. ALOE VERA [Concomitant]
     Active Substance: ALOE VERA LEAF
     Indication: STOMATITIS
     Dates: start: 20180331, end: 20180408
  2. OMEGA 3 [Concomitant]
     Active Substance: OMEGA-3 FATTY ACIDS
     Dates: start: 20181220
  3. FLUOXETIN [Concomitant]
     Active Substance: FLUOXETINE HYDROCHLORIDE
     Indication: ANXIETY
     Dates: start: 2014, end: 20190428
  4. LACTON [Concomitant]
     Indication: CONSTIPATION
     Dates: start: 1968, end: 20180905
  5. TYLEX (BRAZIL) [Concomitant]
     Active Substance: ACETAMINOPHEN\CODEINE PHOSPHATE
     Indication: ABDOMINAL PAIN
     Dates: start: 20180221, end: 20180427
  6. DIPYRONE [Concomitant]
     Active Substance: DIPYRONE
     Dates: start: 20180328
  7. DIPHENHYDRAMINE. [Concomitant]
     Active Substance: DIPHENHYDRAMINE
     Indication: HYPERSENSITIVITY
     Dates: start: 20180320, end: 20180320
  8. ONDANSETRON [Concomitant]
     Active Substance: ONDANSETRON
     Indication: NAUSEA
     Dates: start: 20180320, end: 20180320
  9. ONDANSETRON [Concomitant]
     Active Substance: ONDANSETRON
     Dates: start: 20180321, end: 20180321
  10. CAPTOPRIL. [Concomitant]
     Active Substance: CAPTOPRIL
     Dates: start: 20180427, end: 20180427
  11. LOPERAMIDE [Concomitant]
     Active Substance: LOPERAMIDE
     Indication: DIARRHOEA
     Dates: start: 20180321, end: 20180321
  12. IBUPROFEN. [Concomitant]
     Active Substance: IBUPROFEN
     Indication: ARTHRALGIA
     Dates: start: 20190205, end: 20190325
  13. ALDACTONE [Concomitant]
     Active Substance: SPIRONOLACTONE
     Indication: ASCITES
     Dates: start: 20180221, end: 20180330
  14. DEXAMETHASONE. [Concomitant]
     Active Substance: DEXAMETHASONE
     Route: 042
     Dates: start: 20180428, end: 20180428
  15. RANITIDINE. [Concomitant]
     Active Substance: RANITIDINE
     Indication: ABDOMINAL PAIN UPPER
     Dates: start: 20180320, end: 20180320
  16. RANITIDINE. [Concomitant]
     Active Substance: RANITIDINE
     Dates: start: 20190314, end: 20190314
  17. ONDANSETRON [Concomitant]
     Active Substance: ONDANSETRON
     Indication: VOMITING
     Dates: start: 20180412, end: 20180412
  18. ONDANSETRON [Concomitant]
     Active Substance: ONDANSETRON
     Dates: start: 20181130
  19. ONDANSETRON [Concomitant]
     Active Substance: ONDANSETRON
     Dates: start: 20190403, end: 20190403
  20. VITAMIN C [Concomitant]
     Active Substance: ASCORBIC ACID
     Dates: start: 20181225
  21. ESOMEPRAZOLE. [Concomitant]
     Active Substance: ESOMEPRAZOLE MAGNESIUM
     Indication: GASTRITIS
     Dates: start: 20190208
  22. PACLITAXEL. [Suspect]
     Active Substance: PACLITAXEL
     Indication: OVARIAN CANCER
     Dosage: DATE OF MOST RECENT DOSE OF PACLITAXEL PRIOR TO AE ONSET 20 MAR 2018?ON 12/APR/2018, SHE RECEIVED MO
     Route: 042
     Dates: start: 20180320
  23. RANITIDINE. [Concomitant]
     Active Substance: RANITIDINE
     Dates: start: 20180412, end: 20180412
  24. DIPHENHYDRAMINE. [Concomitant]
     Active Substance: DIPHENHYDRAMINE
     Dates: start: 20180412, end: 20180412
  25. ONDANSETRON [Concomitant]
     Active Substance: ONDANSETRON
     Dates: start: 20190717, end: 20190717
  26. LACTULONA [Concomitant]
     Dates: start: 20180430, end: 20180430
  27. LACTULONA [Concomitant]
     Dates: start: 20180502, end: 20180502
  28. RED BLOOD CELLS, CONCENTRATED [Concomitant]
     Active Substance: HUMAN RED BLOOD CELL
     Indication: ANAEMIA
     Dates: start: 20180426, end: 20180426
  29. ZOLPIDEM [Concomitant]
     Active Substance: ZOLPIDEM TARTRATE
     Indication: INSOMNIA
     Dates: start: 20180221, end: 20180409
  30. DEXAMETHASONE. [Concomitant]
     Active Substance: DEXAMETHASONE
     Route: 048
     Dates: start: 20180410, end: 20180411
  31. DEXAMETHASONE. [Concomitant]
     Active Substance: DEXAMETHASONE
     Route: 048
     Dates: start: 20180424, end: 20180502
  32. RANITIDINE. [Concomitant]
     Active Substance: RANITIDINE
     Dates: start: 20190807, end: 20190807
  33. DIPHENHYDRAMINE. [Concomitant]
     Active Substance: DIPHENHYDRAMINE
     Dates: start: 20190403, end: 20190403
  34. DIPHENHYDRAMINE. [Concomitant]
     Active Substance: DIPHENHYDRAMINE
     Dates: start: 20190807, end: 20190807
  35. ONDANSETRON [Concomitant]
     Active Substance: ONDANSETRON
     Dates: start: 20190807, end: 20190807
  36. NACL [Concomitant]
     Active Substance: SODIUM CHLORIDE
     Indication: HYPONATRAEMIA
     Dates: start: 20180331, end: 20180401
  37. AMLODIPINE [Concomitant]
     Active Substance: AMLODIPINE BESYLATE
     Dates: start: 20180501, end: 20180502
  38. SODIUM CHLORIDE. [Concomitant]
     Active Substance: SODIUM CHLORIDE
     Indication: PROPHYLAXIS
     Dosage: SODIUM CHLORIDE 0.9% (NEBULIZATION)
     Dates: start: 20180403, end: 20180406
  39. BISACODILO [Concomitant]
     Indication: CONSTIPATION
     Dates: start: 20180426, end: 20180426
  40. CARBOPLATIN. [Suspect]
     Active Substance: CARBOPLATIN
     Indication: OVARIAN CANCER
     Dosage: DATE OF MOST RECENT DOSE OF CARBOPLATIN PRIOR TO AE ONSET 20 MAR 2018 ?ACHIEVE A TARGET AREA UNDER T
     Route: 042
     Dates: start: 20180320
  41. DEXAMETHASONE. [Concomitant]
     Active Substance: DEXAMETHASONE
     Indication: HYPERSENSITIVITY
     Route: 042
     Dates: start: 20180320, end: 20180320
  42. DIPHENHYDRAMINE. [Concomitant]
     Active Substance: DIPHENHYDRAMINE
     Dates: start: 20190717, end: 20190717
  43. ONDANSETRON [Concomitant]
     Active Substance: ONDANSETRON
     Dates: start: 20190314, end: 20190314
  44. XYLOCAINE [Concomitant]
     Active Substance: LIDOCAINE HYDROCHLORIDE
     Indication: STOMATITIS
     Dates: start: 20180402, end: 20180408
  45. LUFTAL [Concomitant]
     Active Substance: DIMETHICONE
     Indication: CONSTIPATION
     Dates: start: 20180404, end: 20180408
  46. CAPTOPRIL. [Concomitant]
     Active Substance: CAPTOPRIL
     Dates: start: 20180614, end: 20180614
  47. CAPTOPRIL. [Concomitant]
     Active Substance: CAPTOPRIL
     Dates: start: 20180616, end: 20180616
  48. PROMETHAZINE [Concomitant]
     Active Substance: PROMETHAZINE HYDROCHLORIDE
     Indication: HYPERSENSITIVITY
     Dates: start: 20180319, end: 20180331
  49. NACL [Concomitant]
     Active Substance: SODIUM CHLORIDE
     Indication: HYPONATRAEMIA
     Dates: start: 20180331, end: 20180401
  50. LORAZEPAN [Concomitant]
     Active Substance: LORAZEPAM
     Indication: INSOMNIA
     Dates: start: 20180410, end: 20180716
  51. FOLIC ACID. [Concomitant]
     Active Substance: FOLIC ACID
     Indication: ANAEMIA
     Dates: start: 20180410, end: 20180426
  52. TRIAMCINOLONE [Concomitant]
     Active Substance: TRIAMCINOLONE
     Indication: STOMATITIS
     Dosage: DOSE 1 OTHER
     Route: 061
     Dates: start: 20180331, end: 20180408
  53. PARACETAMOL [Concomitant]
     Active Substance: ACETAMINOPHEN
     Indication: PROPHYLAXIS
     Dates: start: 20180423, end: 20180424
  54. PREGABALIN. [Concomitant]
     Active Substance: PREGABALIN
     Indication: POLYARTHRITIS
     Dates: start: 20190328, end: 20190330
  55. SERTRALINE [Concomitant]
     Active Substance: SERTRALINE HYDROCHLORIDE
     Indication: ANXIETY
     Dates: start: 20190429
  56. LEVOTIROXIN [Concomitant]
     Active Substance: LEVOTHYROXINE SODIUM
     Indication: HYPOTHYROIDISM
     Dates: start: 2016
  57. DIPYRONE [Concomitant]
     Active Substance: DIPYRONE
     Indication: ABDOMINAL PAIN
     Dates: start: 20180221, end: 20180403
  58. DEXAMETHASONE. [Concomitant]
     Active Substance: DEXAMETHASONE
     Route: 048
     Dates: start: 20180412, end: 20180412
  59. RANITIDINE. [Concomitant]
     Active Substance: RANITIDINE
     Dates: start: 20190717, end: 20190717
  60. DIPHENHYDRAMINE. [Concomitant]
     Active Substance: DIPHENHYDRAMINE
     Dates: start: 20190425, end: 20190425
  61. NYSTATIN. [Concomitant]
     Active Substance: NYSTATIN
     Indication: STOMATITIS
     Dates: start: 20180323, end: 20180821
  62. TRAMADOL. [Concomitant]
     Active Substance: TRAMADOL
     Indication: ABDOMINAL PAIN
     Dates: start: 20180402, end: 20180403
  63. PROMETHAZINE [Concomitant]
     Active Substance: PROMETHAZINE HYDROCHLORIDE
     Indication: URTICARIA
     Dates: start: 20180428, end: 20180428
  64. FERROUS SULFATE. [Concomitant]
     Active Substance: FERROUS SULFATE
     Dates: start: 20180427, end: 20180813
  65. AMLODIPINE [Concomitant]
     Active Substance: AMLODIPINE BESYLATE
     Indication: HYPERTENSION
     Dates: start: 20180426, end: 20180426
  66. ALOE VERA [Concomitant]
     Active Substance: ALOE VERA LEAF
     Dates: start: 20180501
  67. SODIUM CHLORIDE. [Concomitant]
     Active Substance: SODIUM CHLORIDE
     Indication: HYPONATRAEMIA
     Dates: start: 20180331, end: 20180401
  68. BLINDED ATEZOLIZUMAB [Suspect]
     Active Substance: ATEZOLIZUMAB
     Indication: OVARIAN CANCER
     Dosage: DATE OF MOST RECENT DOSE OF ATEZOLIZUMAB/PLACEBO PRIOR TO AE ONSET 20 MAR 2018?ON 12/APR/2018, SHE R
     Route: 042
     Dates: start: 20180320
  69. CAPTOPRIL. [Concomitant]
     Active Substance: CAPTOPRIL
     Indication: HYPERTENSION
     Dates: start: 20180412, end: 20180412
  70. CAPTOPRIL. [Concomitant]
     Active Substance: CAPTOPRIL
     Dates: start: 20180501, end: 20180501
  71. FERROUS SULFATE. [Concomitant]
     Active Substance: FERROUS SULFATE
     Indication: INSOMNIA
     Dates: start: 20180410, end: 20180426
  72. FOLIC ACID. [Concomitant]
     Active Substance: FOLIC ACID
     Dates: start: 20180427, end: 20180813
  73. LORATADINE. [Concomitant]
     Active Substance: LORATADINE
     Indication: PAPULE
     Dates: start: 20180430, end: 20180502
  74. BUPRENORPHINE. [Concomitant]
     Active Substance: BUPRENORPHINE
     Indication: ABDOMINAL PAIN
     Dates: start: 20181117
  75. DIACERHEIN [Concomitant]
     Indication: POLYARTHRITIS
     Dates: start: 20190624, end: 20190728
  76. BEVACIZUMAB. [Suspect]
     Active Substance: BEVACIZUMAB
     Indication: OVARIAN CANCER
     Dosage: DATE OF MOST RECENT DOSE OF BEVACIZUMAB PRIOR TO AE ONSET 20 MAR 2018?ON 12/APR/2018, SHE RECEIVED M
     Route: 042
     Dates: start: 20180320
  77. RANITIDINE. [Concomitant]
     Active Substance: RANITIDINE
     Dates: start: 20190403, end: 20190403
  78. RANITIDINE. [Concomitant]
     Active Substance: RANITIDINE
     Dates: start: 20190425, end: 20190425
  79. DIPHENHYDRAMINE. [Concomitant]
     Active Substance: DIPHENHYDRAMINE
     Dates: start: 20190314, end: 20190314
  80. ONDANSETRON [Concomitant]
     Active Substance: ONDANSETRON
     Dates: start: 20190425, end: 20190425
  81. LACTULONA [Concomitant]
     Indication: CONSTIPATION
     Dates: start: 20180404, end: 20180408
  82. CAPTOPRIL. [Concomitant]
     Active Substance: CAPTOPRIL
     Indication: HYPERTENSION
     Dates: start: 20180408, end: 20180408
  83. OMEPRAZOLE. [Concomitant]
     Active Substance: OMEPRAZOLE
     Indication: ABDOMINAL PAIN UPPER
     Dates: start: 20180321, end: 20180904

REACTIONS (5)
  - Febrile neutropenia [Recovered/Resolved]
  - Hypertension [Recovered/Resolved]
  - Urticaria [Recovered/Resolved]
  - Thrombocytopenia [Recovered/Resolved]
  - Hypertension [Recovered/Resolved]

NARRATIVE: CASE EVENT DATE: 20180329
